FAERS Safety Report 7934068-2 (Version None)
Quarter: 2011Q4

REPORT INFORMATION
  Report Type: 
  Country: None (occurrence: None)
  Receive Date: 20111122
  Receipt Date: 20111117
  Transmission Date: 20120403
  Serious: Yes (Other)
  Sender: FDA-Public Use
  Company Number: FI-ROCHE-796162

PATIENT
  Sex: Male

DRUGS (6)
  1. LOSARTAN POTASSIUM AND HYDROCHLOROTHIAZIDE [Concomitant]
     Indication: HYPERTENSION
  2. HERCEPTIN [Suspect]
     Route: 065
  3. XELODA [Concomitant]
     Indication: METASTATIC GASTRIC CANCER
     Dosage: FREQUENCY: TWICE A DAY FOR 14 DAYS FOLLOWED BY 7- DAY DRUG REST
     Route: 048
     Dates: start: 20110126, end: 20110801
  4. HERCEPTIN [Suspect]
     Indication: METASTATIC GASTRIC CANCER
     Route: 065
     Dates: start: 20110126, end: 20110628
  5. OXALIPLATIN [Concomitant]
     Indication: METASTATIC GASTRIC CANCER
     Dates: start: 20110126, end: 20110801
  6. HERCEPTIN [Suspect]
     Route: 065
     Dates: start: 20110218, end: 20110711

REACTIONS (2)
  - CARDIOMEGALY [None]
  - EJECTION FRACTION DECREASED [None]
